FAERS Safety Report 16206501 (Version 1)
Quarter: 2019Q2

REPORT INFORMATION
  Report Type: Spontaneous
  Country: US (occurrence: US)
  Receive Date: 20190313
  Receipt Date: 20190313
  Transmission Date: 20190711
  Serious: No
  Sender: FDA-Public Use
  Company Number: None

PATIENT
  Age: 83 Year
  Sex: Male
  Weight: 80.29 kg

DRUGS (1)
  1. CEPHALEXIN 500MG [Suspect]
     Active Substance: CEPHALEXIN
     Indication: INFECTION PROPHYLAXIS
     Route: 048
     Dates: start: 20190213, end: 20190216

REACTIONS (4)
  - Suspected product contamination [None]
  - Pneumonitis [None]
  - Cough [None]
  - Manufacturing equipment cleaning issue [None]

NARRATIVE: CASE EVENT DATE: 20190216
